FAERS Safety Report 4511782-2 (Version None)
Quarter: 2004Q4

REPORT INFORMATION
  Report Type: 
  Country: None (occurrence: None)
  Receive Date: 20041123
  Receipt Date: 20041123
  Transmission Date: 20050328
  Serious: Yes (Other)
  Sender: FDA-Public Use
  Company Number: None

PATIENT
  Age: 75 Year
  Sex: Male
  Weight: 70.3 kg

DRUGS (10)
  1. TERAZOSIN HCL [Suspect]
  2. ISOSORBIDE MONONITRATE [Concomitant]
  3. AMIODARONE HCL [Concomitant]
  4. ATENOLOL [Concomitant]
  5. CICLOPIROX OLAMINE [Concomitant]
  6. ALPRAZOLAM [Concomitant]
  7. TERAZOSIN HCL [Concomitant]
  8. PSYLLIUM SF [Concomitant]
  9. SIMVASTATIN [Concomitant]
  10. IBUPROFEN [Concomitant]

REACTIONS (1)
  - HYPOTENSION [None]
